FAERS Safety Report 23913239 (Version 1)
Quarter: 2024Q2

REPORT INFORMATION
  Report Type: Spontaneous
  Country: US (occurrence: US)
  Receive Date: 20240529
  Receipt Date: 20240529
  Transmission Date: 20240716
  Serious: No
  Sender: FDA-Public Use
  Company Number: US-HALEON-2178545

PATIENT
  Age: 59 Year

DRUGS (1)
  1. SENSODYNE SENSITIVITY AND GUM WHITENING [Suspect]
     Active Substance: STANNOUS FLUORIDE
     Indication: Product used for unknown indication
     Dosage: EXPDATE:20250430
     Dates: start: 20240428

REACTIONS (1)
  - Noninfective gingivitis [Recovered/Resolved]
